FAERS Safety Report 7558933-3 (Version None)
Quarter: 2011Q2

REPORT INFORMATION
  Report Type: 
  Country: None (occurrence: None)
  Receive Date: 20110621
  Receipt Date: 20110610
  Transmission Date: 20111010
  Serious: No
  Sender: FDA-Public Use
  Company Number: US-JNJFOC-20110605759

PATIENT
  Sex: Female
  Weight: 52.16 kg

DRUGS (7)
  1. PERCOCET [Concomitant]
     Indication: BREAKTHROUGH PAIN
     Route: 048
     Dates: start: 20050101
  2. DURAGESIC-100 [Suspect]
     Route: 062
     Dates: start: 20101201, end: 20110101
  3. DURAGESIC-100 [Suspect]
     Indication: JOINT INJURY
     Route: 062
     Dates: start: 20110501
  4. DURAGESIC-100 [Suspect]
     Route: 062
     Dates: start: 20110101
  5. DURAGESIC-100 [Suspect]
     Route: 062
     Dates: start: 20101201, end: 20101201
  6. UBNSPECIFIED FENTANYL TRANSDERMAL SYSTEM [Suspect]
     Indication: JOINT INJURY
     Route: 062
     Dates: start: 20110501
  7. DURAGESIC-100 [Suspect]
     Route: 062
     Dates: start: 20110101, end: 20110101

REACTIONS (3)
  - WRONG TECHNIQUE IN DRUG USAGE PROCESS [None]
  - WITHDRAWAL SYNDROME [None]
  - PRODUCT ADHESION ISSUE [None]
